FAERS Safety Report 23416227 (Version 1)
Quarter: 2024Q1

REPORT INFORMATION
  Report Type: Other
  Country: ZA (occurrence: None)
  Receive Date: 20240118
  Receipt Date: 20240118
  Transmission Date: 20240410
  Serious: Yes (Other)
  Sender: FDA-Public Use
  Company Number: ZA-ROCHE-3490732

PATIENT
  Sex: Female

DRUGS (1)
  1. OCREVUS [Suspect]
     Active Substance: OCRELIZUMAB
     Indication: Relapsing-remitting multiple sclerosis
     Dosage: THEREAFTER 600MG EVERY 6 MONTHS ;ONGOING: YES
     Route: 041
     Dates: start: 20220405

REACTIONS (5)
  - Cervical spinal stenosis [Unknown]
  - Multiple sclerosis [Unknown]
  - Muscular weakness [Unknown]
  - Pain in extremity [Unknown]
  - Gait disturbance [Unknown]
